FAERS Safety Report 10067153 (Version 2)
Quarter: 2014Q2

REPORT INFORMATION
  Report Type: Spontaneous
  Country: US (occurrence: None)
  Receive Date: 20140407
  Receipt Date: 20140417
  Transmission Date: 20141212
  Serious: Yes (Hospitalization)
  Sender: FDA-Public Use
  Company Number: UTC-046592

PATIENT
  Age: 63 Year
  Sex: Male

DRUGS (3)
  1. REMODULIN [Suspect]
     Indication: PULMONARY ARTERIAL HYPERTENSION
     Dosage: 180 UG/KG (0.125 UG/KG 1 IN 1 MIN), INTRAVENOUS DRIP
     Route: 041
     Dates: start: 20090925
  2. ADCIRCA (TADALAFIL) [Concomitant]
  3. COUMADIN (WARFARIN SODIUM) [Concomitant]

REACTIONS (3)
  - Device dislocation [None]
  - Drug dose omission [None]
  - Hypoxia [None]
